FAERS Safety Report 22093019 (Version 4)
Quarter: 2023Q2

REPORT INFORMATION
  Report Type: Spontaneous
  Country: US (occurrence: US)
  Receive Date: 20230314
  Receipt Date: 20230615
  Transmission Date: 20230722
  Serious: No
  Sender: FDA-Public Use
  Company Number: US-UNITED THERAPEUTICS-UNT-2023-004463

PATIENT
  Sex: Female
  Weight: 49.887 kg

DRUGS (6)
  1. TYVASO [Suspect]
     Active Substance: TREPROSTINIL
     Indication: Pulmonary arterial hypertension
     Dosage: 60 ?G, QID
  2. TYVASO [Suspect]
     Active Substance: TREPROSTINIL
     Dosage: UNK
  3. TYVASO [Suspect]
     Active Substance: TREPROSTINIL
     Dosage: UNK
  4. TYVASO [Suspect]
     Active Substance: TREPROSTINIL
     Dosage: UNK
  5. TYVASO [Suspect]
     Active Substance: TREPROSTINIL
     Dosage: UNK
     Dates: start: 20220404
  6. OFEV [Suspect]
     Active Substance: NINTEDANIB
     Indication: Product used for unknown indication
     Dosage: UNK
     Route: 065

REACTIONS (7)
  - Diarrhoea [Unknown]
  - Dizziness [Unknown]
  - Asthenia [Unknown]
  - Weight decreased [Recovering/Resolving]
  - Decreased appetite [Unknown]
  - Taste disorder [Unknown]
  - Memory impairment [Unknown]
